FAERS Safety Report 22023370 (Version 1)
Quarter: 2023Q1

REPORT INFORMATION
  Report Type: Spontaneous
  Country: US (occurrence: US)
  Receive Date: 20230223
  Receipt Date: 20230223
  Transmission Date: 20230418
  Serious: No
  Sender: FDA-Public Use
  Company Number: US-009507513-2302USA005055

PATIENT
  Age: 66 Year
  Sex: Male

DRUGS (2)
  1. CUBICIN [Suspect]
     Active Substance: DAPTOMYCIN
     Indication: Endocarditis
     Dosage: 680 MILLIGRAM, QD
     Route: 042
  2. CEFTAROLINE [Concomitant]
     Active Substance: CEFTAROLINE
     Indication: Endocarditis
     Dosage: 600 MILLIGRAM, Q12H

REACTIONS (1)
  - Product use in unapproved indication [Unknown]
